FAERS Safety Report 13239015 (Version 2)
Quarter: 2017Q1

REPORT INFORMATION
  Report Type: Spontaneous
  Country: US (occurrence: US)
  Receive Date: 20170216
  Receipt Date: 20170217
  Transmission Date: 20170428
  Serious: Yes (Hospitalization)
  Sender: FDA-Public Use
  Company Number: US-ASTRAZENECA-2017SE16972

PATIENT
  Age: 58 Year
  Sex: Female
  Weight: 65.8 kg

DRUGS (11)
  1. DALIRESP [Suspect]
     Active Substance: ROFLUMILAST
     Indication: CHRONIC OBSTRUCTIVE PULMONARY DISEASE
     Route: 048
     Dates: start: 2014
  2. REGULAR TYLENOL [Concomitant]
     Indication: HEADACHE
     Dosage: 2.0DF AS REQUIRED
     Route: 048
     Dates: start: 201701
  3. QUINAPRIL. [Concomitant]
     Active Substance: QUINAPRIL
     Route: 065
  4. SPIRIVA [Concomitant]
     Active Substance: TIOTROPIUM BROMIDE MONOHYDRATE
     Indication: CHRONIC OBSTRUCTIVE PULMONARY DISEASE
     Dosage: DAILY
     Route: 055
  5. SYMBICORT [Suspect]
     Active Substance: BUDESONIDE\FORMOTEROL FUMARATE DIHYDRATE
     Indication: CHRONIC OBSTRUCTIVE PULMONARY DISEASE
     Dosage: 80/4.5 MCG, 2 PUFFS TWICE A DAY
     Route: 055
     Dates: start: 2013
  6. REGULAR TYLENOL [Concomitant]
     Indication: PAIN IN EXTREMITY
     Dosage: 2.0DF AS REQUIRED
     Route: 048
     Dates: start: 201701
  7. REGULAR TYLENOL [Concomitant]
     Indication: BACK PAIN
     Dosage: 2.0DF AS REQUIRED
     Route: 048
     Dates: start: 201701
  8. BABY ASPIRIN [Concomitant]
     Active Substance: ASPIRIN
     Route: 065
  9. DALIRESP [Suspect]
     Active Substance: ROFLUMILAST
     Indication: LUNG DISORDER
     Route: 048
     Dates: start: 2014
  10. FLUNASAL [Concomitant]
     Indication: SINUS DISORDER
     Dosage: 2 SPRAYS EACH NOSTRIL, DAILY
     Route: 045
     Dates: start: 2016
  11. LEXAPRO [Concomitant]
     Active Substance: ESCITALOPRAM OXALATE
     Route: 065

REACTIONS (12)
  - Anxiety [Not Recovered/Not Resolved]
  - Incontinence [Not Recovered/Not Resolved]
  - Food allergy [Not Recovered/Not Resolved]
  - Scoliosis [Unknown]
  - Headache [Not Recovered/Not Resolved]
  - Nasal septum deviation [Unknown]
  - Sinus disorder [Not Recovered/Not Resolved]
  - Dyspnoea [Not Recovered/Not Resolved]
  - Immune system disorder [Not Recovered/Not Resolved]
  - Off label use [Not Recovered/Not Resolved]
  - Pulmonary mass [Not Recovered/Not Resolved]
  - Restless legs syndrome [Unknown]

NARRATIVE: CASE EVENT DATE: 2013
